FAERS Safety Report 14663383 (Version 3)
Quarter: 2019Q2

REPORT INFORMATION
  Report Type: Spontaneous
  Country: US (occurrence: US)
  Receive Date: 20180321
  Receipt Date: 20190501
  Transmission Date: 20190711
  Serious: Yes (Hospitalization)
  Sender: FDA-Public Use
  Company Number: US-PFIZER INC-2018112109

PATIENT
  Age: 91 Year
  Sex: Male
  Weight: 88.45 kg

DRUGS (2)
  1. LATANOPROST. [Suspect]
     Active Substance: LATANOPROST
     Indication: GLAUCOMA
     Dosage: 2 GTT, DAILY(ONE DROP IN EACH EYE BEFORE BED DAILY)
     Dates: start: 2013, end: 2018
  2. LATANOPROST. [Suspect]
     Active Substance: LATANOPROST
     Indication: EYE IRRITATION
     Dosage: UNK
     Dates: end: 2018

REACTIONS (7)
  - Dry eye [Recovered/Resolved]
  - Foreign body sensation in eyes [Recovered/Resolved]
  - Eye pruritus [Recovered/Resolved]
  - Vision blurred [Recovered/Resolved]
  - Eye pain [Recovered/Resolved]
  - Ocular hyperaemia [Recovered/Resolved]
  - Eye irritation [Recovered/Resolved]

NARRATIVE: CASE EVENT DATE: 201709
